FAERS Safety Report 7887006-5 (Version None)
Quarter: 2011Q4

REPORT INFORMATION
  Report Type: 
  Country: None (occurrence: None)
  Receive Date: 20111102
  Receipt Date: 20110713
  Transmission Date: 20120403
  Serious: No
  Sender: FDA-Public Use
  Company Number: US-AMGEN-USASP2011028981

PATIENT
  Age: 74 Year
  Sex: Female
  Weight: 114.29 kg

DRUGS (1)
  1. ENBREL [Suspect]
     Indication: RHEUMATOID ARTHRITIS
     Dosage: 50 MG, QWK
     Dates: start: 20110404

REACTIONS (8)
  - INJECTION SITE HAEMATOMA [None]
  - INJECTION SITE PAIN [None]
  - ARTHRALGIA [None]
  - INJECTION SITE ERYTHEMA [None]
  - MIGRAINE [None]
  - MUSCULOSKELETAL STIFFNESS [None]
  - EYE DISORDER [None]
  - MYALGIA [None]
